FAERS Safety Report 9799574 (Version 3)
Quarter: 2015Q3

REPORT INFORMATION
  Report Type: Spontaneous
  Country: US (occurrence: US)
  Receive Date: 20140106
  Receipt Date: 20150806
  Transmission Date: 20151125
  Serious: Yes (Hospitalization)
  Sender: FDA-Public Use
  Company Number: US-GILEAD-2010-0030210

PATIENT
  Age: 81 Year
  Sex: Female

DRUGS (17)
  1. ASA [Concomitant]
     Active Substance: ASPIRIN
  2. PARACETAMOL/HYDROCODONE BITARTRATE [Concomitant]
  3. LETAIRIS [Suspect]
     Active Substance: AMBRISENTAN
     Indication: PULMONARY ARTERIAL HYPERTENSION
     Route: 048
     Dates: start: 201003
  4. LISINOPRIL. [Concomitant]
     Active Substance: LISINOPRIL
  5. NOVOLOG [Concomitant]
     Active Substance: INSULIN ASPART
  6. ZETIA [Concomitant]
     Active Substance: EZETIMIBE
  7. XANAX [Concomitant]
     Active Substance: ALPRAZOLAM
  8. ALLOPURINOL. [Concomitant]
     Active Substance: ALLOPURINOL
  9. PREMARIN [Concomitant]
     Active Substance: ESTROGENS, CONJUGATED
  10. ZOLOFT [Concomitant]
     Active Substance: SERTRALINE HYDROCHLORIDE
  11. REVATIO [Concomitant]
     Active Substance: SILDENAFIL CITRATE
  12. ATENOLOL. [Concomitant]
     Active Substance: ATENOLOL
  13. LASIX [Concomitant]
     Active Substance: FUROSEMIDE
  14. ETODOLAC. [Concomitant]
     Active Substance: ETODOLAC
  15. TRAMADOL HCL [Concomitant]
     Active Substance: TRAMADOL HYDROCHLORIDE
  16. PRAVASTATIN [Concomitant]
     Active Substance: PRAVASTATIN\PRAVASTATIN SODIUM
  17. KLOR-CON [Concomitant]
     Active Substance: POTASSIUM CHLORIDE

REACTIONS (4)
  - Peripheral swelling [Unknown]
  - Fluid retention [Unknown]
  - Weight increased [Unknown]
  - Dyspnoea [Unknown]
